FAERS Safety Report 8213206-0 (Version None)
Quarter: 2012Q1

REPORT INFORMATION
  Report Type: 
  Country: None (occurrence: None)
  Receive Date: 20120315
  Receipt Date: 20120308
  Transmission Date: 20120608
  Serious: Yes (Other)
  Sender: FDA-Public Use
  Company Number: FR-BAYER-2012-019638

PATIENT
  Age: 75 Year
  Sex: Female
  Weight: 42 kg

DRUGS (1)
  1. ASPIRIN [Suspect]
     Indication: PLATELET AGGREGATION INHIBITION
     Dosage: 1 DF, QD
     Route: 048
     Dates: start: 20080101

REACTIONS (9)
  - HEADACHE [None]
  - CHILLS [None]
  - LOCALISED OEDEMA [None]
  - UNEVALUABLE EVENT [None]
  - RASH [None]
  - FACE OEDEMA [None]
  - ANGIOEDEMA [None]
  - PRURITUS [None]
  - LIP OEDEMA [None]
